FAERS Safety Report 14526416 (Version 1)
Quarter: 2020Q3

REPORT INFORMATION
  Report Type: Report from Study
  Country: HU (occurrence: HU)
  Receive Date: 20180213
  Receipt Date: 20180213
  Transmission Date: 20201104
  Serious: Yes (Other)
  Sender: FDA-Public Use
  Company Number: HU-BAXTER-2018BAX001636

PATIENT
  Age: 62 Year

DRUGS (15)
  1. EVEROLIMUS. [Suspect]
     Active Substance: EVEROLIMUS
     Indication: BREAST CANCER
     Dosage: 10 MG, UNK
     Route: 065
  2. EVEROLIMUS. [Suspect]
     Active Substance: EVEROLIMUS
     Dosage: 10 MG, UNK
     Route: 065
  3. DOXORUBICIN [Suspect]
     Active Substance: DOXORUBICIN
     Indication: BREAST CANCER
     Dosage: UNK ()
     Route: 065
  4. EPIRUBICIN [Suspect]
     Active Substance: EPIRUBICIN
     Indication: BREAST CANCER
     Dosage: ()
     Route: 065
  5. ANASTROZOLE. [Suspect]
     Active Substance: ANASTROZOLE
     Indication: BREAST CANCER
     Dosage: ()
     Route: 065
  6. ANASTROZOLE. [Suspect]
     Active Substance: ANASTROZOLE
     Dosage: DOSE RE?INTRODUCED
     Route: 065
  7. FLUOROURACIL. [Suspect]
     Active Substance: FLUOROURACIL
     Indication: BREAST CANCER
     Dosage: ()
     Route: 065
  8. DOXORUBICIN [Suspect]
     Active Substance: DOXORUBICIN
     Dosage: DOSE RE?INTRODUCED
     Route: 065
  9. EVEROLIMUS. [Suspect]
     Active Substance: EVEROLIMUS
     Dosage: DOSE INCREASED
     Route: 065
  10. EXEMESTANE. [Concomitant]
     Active Substance: EXEMESTANE
     Indication: BREAST CANCER
     Dosage: UNK ()
     Route: 065
  11. ENDOXAN 1G POR OLDATOS INJEKCI?HOZ [Suspect]
     Active Substance: CYCLOPHOSPHAMIDE
     Indication: BREAST CANCER
     Dosage: UNK ()
     Route: 065
  12. ENDOXAN 1G POR OLDATOS INJEKCI?HOZ [Suspect]
     Active Substance: CYCLOPHOSPHAMIDE
     Dosage: DOSE RE?INTRODCUED
     Route: 065
  13. IBANDRONIC ACID. [Suspect]
     Active Substance: IBANDRONIC ACID
     Indication: METASTASES TO BONE
     Dosage: UNK ()
     Route: 065
  14. IBANDRONIC ACID. [Suspect]
     Active Substance: IBANDRONIC ACID
     Dosage: DOSE RE?INTRODUCED
     Route: 065
  15. EVEROLIMUS. [Suspect]
     Active Substance: EVEROLIMUS
     Dosage: 5 MG, UNK
     Route: 065

REACTIONS (14)
  - Mucosal ulceration [Recovering/Resolving]
  - Pyrexia [Recovered/Resolved]
  - Pleural effusion [Unknown]
  - Metastases to bone [Unknown]
  - Lung disorder [Unknown]
  - Metastases to bone [Unknown]
  - Decreased appetite [Recovered/Resolved]
  - Metastases to lymph nodes [Unknown]
  - Asthenia [Recovered/Resolved]
  - Anaemia [Unknown]
  - Pain [Recovered/Resolved]
  - Hydrothorax [Unknown]
  - Metastases to lymph nodes [Unknown]
  - Metastases to liver [Unknown]

NARRATIVE: CASE EVENT DATE: 201606
